FAERS Safety Report 11964960 (Version 2)
Quarter: 2016Q1

REPORT INFORMATION
  Report Type: Spontaneous
  Country: US (occurrence: US)
  Receive Date: 20160127
  Receipt Date: 20160311
  Transmission Date: 20160526
  Serious: Yes (Hospitalization)
  Sender: FDA-Public Use
  Company Number: US-BEH-2015056948

PATIENT
  Age: 39 Year
  Sex: Female
  Weight: 112 kg

DRUGS (28)
  1. COUMADIN [Concomitant]
     Active Substance: WARFARIN SODIUM
  2. ZOFRAN [Concomitant]
     Active Substance: ONDANSETRON HYDROCHLORIDE
  3. RANEXA [Concomitant]
     Active Substance: RANOLAZINE
  4. RUCONEST [Concomitant]
     Active Substance: HUMAN C1-ESTERASE INHIBITOR
  5. EPIPEN [Concomitant]
     Active Substance: EPINEPHRINE
  6. MIRAPEX [Concomitant]
     Active Substance: PRAMIPEXOLE DIHYDROCHLORIDE
  7. SINGULAIR [Concomitant]
     Active Substance: MONTELUKAST SODIUM
  8. VIMPAT [Concomitant]
     Active Substance: LACOSAMIDE
  9. BERINERT [Suspect]
     Active Substance: HUMAN C1-ESTERASE INHIBITOR
     Indication: HEREDITARY ANGIOEDEMA
     Dosage: 500 UNIT VIAL
     Route: 042
     Dates: start: 20150416
  10. SODIUM CHLORIDE. [Concomitant]
     Active Substance: SODIUM CHLORIDE
  11. LIPITOR [Concomitant]
     Active Substance: ATORVASTATIN CALCIUM
  12. GABAPENTIN. [Concomitant]
     Active Substance: GABAPENTIN
  13. STERILE WATER FOR INJECTION [Concomitant]
     Active Substance: WATER
  14. DIPHENHYDRAMINE. [Concomitant]
     Active Substance: DIPHENHYDRAMINE
  15. TRAMADOL. [Concomitant]
     Active Substance: TRAMADOL
  16. LASIX [Concomitant]
     Active Substance: FUROSEMIDE
  17. METOPROLOL TARTRATE. [Concomitant]
     Active Substance: METOPROLOL TARTRATE
  18. VITAMIN D [Concomitant]
     Active Substance: CHOLECALCIFEROL
  19. TOPIRAMATE. [Concomitant]
     Active Substance: TOPIRAMATE
  20. SPIRONOLACTONE. [Concomitant]
     Active Substance: SPIRONOLACTONE
  21. NORMAL SALINE [Concomitant]
     Active Substance: SODIUM CHLORIDE
  22. FERROUS SULFATE [Concomitant]
     Active Substance: FERROUS SULFATE\FERROUS SULFATE, DRIED
  23. KLOR-CON [Concomitant]
     Active Substance: POTASSIUM CHLORIDE
  24. VITAMIN B12 [Concomitant]
     Active Substance: CYANOCOBALAMIN
  25. BERINERT [Suspect]
     Active Substance: HUMAN C1-ESTERASE INHIBITOR
     Indication: HEREDITARY ANGIOEDEMA
     Dosage: 500 UNIT VIAL
     Route: 042
     Dates: start: 20150416
  26. HEPARIN [Concomitant]
     Active Substance: HEPARIN SODIUM
  27. ZANTAC [Concomitant]
     Active Substance: RANITIDINE HYDROCHLORIDE
  28. ZYRTEC [Concomitant]
     Active Substance: CETIRIZINE HYDROCHLORIDE

REACTIONS (4)
  - Hereditary angioedema [Unknown]
  - Cardiac pacemaker insertion [Recovered/Resolved]
  - Medical device site infection [Recovering/Resolving]
  - Device related infection [Recovered/Resolved]

NARRATIVE: CASE EVENT DATE: 20151212
